FAERS Safety Report 9049281 (Version 1)
Quarter: 2012Q4

REPORT INFORMATION
  Report Type: Spontaneous
  Country: US (occurrence: None)
  Receive Date: 20120905
  Receipt Date: 20120905
  Transmission Date: 20130627
  Serious: Yes (Other)
  Sender: FDA-Public Use
  Company Number: E2B_00000313

PATIENT
  Age: 46 Year
  Sex: Female
  Weight: 83.92 kg

DRUGS (8)
  1. SIMVASTATIN [Suspect]
     Indication: HYPERCHOLESTEROLEMIA
     Route: 048
  2. SIMVASTATIN [Suspect]
     Indication: HYPERCHOLESTEROLEMIA
     Dosage: (Half tablet)
     Route: 048
     Dates: end: 201206
  3. METOPROLOL SUCCINATE [Concomitant]
  4. LEVOTHYROXINE SODIUM [Concomitant]
  5. SOLIFENACIN SUCCINATE (VESICARE) [Concomitant]
  6. AMITRIPTYLINE HYDROCHLORIDE [Concomitant]
  7. ASPIRIN (ASPIR-81) [Concomitant]
  8. LISINOPRIL [Concomitant]

REACTIONS (9)
  - Muscular weakness [None]
  - Insomnia [None]
  - Disturbance in attention [None]
  - Nocturia [None]
  - Pollakiuria [None]
  - Back pain [None]
  - Neck pain [None]
  - Arthropathy [None]
  - Hypoaesthesia [None]
